FAERS Safety Report 5206362-X (Version None)
Quarter: 2007Q1

REPORT INFORMATION
  Report Type: 
  Country: None (occurrence: None)
  Receive Date: 20070111
  Receipt Date: 20070104
  Transmission Date: 20070707
  Serious: Yes (Other)
  Sender: FDA-Public Use
  Company Number: US-PFIZER INC-2007001897

PATIENT
  Sex: Male

DRUGS (5)
  1. XALATAN [Suspect]
     Indication: GLAUCOMA
     Route: 047
  2. DORZOLAMIDE HCL [Concomitant]
  3. FISH OIL [Concomitant]
  4. VITAMIN A [Concomitant]
  5. METOPROLOL SUCCINATE [Concomitant]

REACTIONS (1)
  - HYPERTENSION [None]
